FAERS Safety Report 9478639 (Version 1)
Quarter: 2013Q3

REPORT INFORMATION
  Report Type: Spontaneous
  Country: IT (occurrence: IT)
  Receive Date: 20130827
  Receipt Date: 20130827
  Transmission Date: 20140515
  Serious: Yes (Other)
  Sender: FDA-Public Use
  Company Number: IT-INCYTE CORPORATION-2013IN001864

PATIENT
  Sex: Female

DRUGS (2)
  1. JAKAVI [Suspect]
     Indication: MYELOFIBROSIS
     Dosage: 40 MG, DAILY
     Route: 048
     Dates: start: 20120109, end: 20120726
  2. JAKAVI [Suspect]
     Dosage: 15 MG,BID
     Route: 048
     Dates: start: 20120726

REACTIONS (1)
  - Hepatitis B [Recovered/Resolved]
